FAERS Safety Report 4927756-3 (Version None)
Quarter: 2006Q1

REPORT INFORMATION
  Report Type: 
  Country: None (occurrence: None)
  Receive Date: 20060222
  Receipt Date: 20060216
  Transmission Date: 20060701
  Serious: Yes (Other)
  Sender: FDA-Public Use
  Company Number: 006657

PATIENT
  Sex: Female

DRUGS (7)
  1. MEDROXYPROGESTERONE ACETATE [Suspect]
     Dosage: ORAL
     Route: 048
  2. PREMPRO [Suspect]
     Dosage: ORAL
     Route: 048
  3. PREMARIN [Suspect]
     Dosage: ORAL
     Route: 048
  4. FEMHRT [Suspect]
     Dosage: ORAL
     Route: 048
  5. OGEN [Suspect]
     Dosage: ORAL
     Route: 048
  6. ESTROPIPATE [Suspect]
     Dosage: ORAL
     Route: 048
  7. PROVERA [Suspect]
     Dosage: ORAL
     Route: 048

REACTIONS (3)
  - ANGIOPATHY [None]
  - BREAST CANCER FEMALE [None]
  - METASTASIS [None]
